FAERS Safety Report 8299539-0 (Version None)
Quarter: 2012Q2

REPORT INFORMATION
  Report Type: 
  Country: None (occurrence: None)
  Receive Date: 20120419
  Receipt Date: 20120403
  Transmission Date: 20120825
  Serious: Yes (Hospitalization)
  Sender: FDA-Public Use
  Company Number: CHPA2012US006337

PATIENT
  Age: 45 Year
  Sex: Female

DRUGS (3)
  1. DRUG THERAPY NOS [Concomitant]
     Dosage: UNK, UNK
  2. EXCEDRIN (MIGRAINE) [Suspect]
     Indication: MIGRAINE
     Dosage: 1 DF, UNK
     Route: 048
     Dates: start: 20111209, end: 20111209
  3. TREXIMET [Concomitant]
     Indication: MIGRAINE
     Dosage: UNK, UNK
     Route: 048

REACTIONS (6)
  - MALAISE [None]
  - NAUSEA [None]
  - UNDERDOSE [None]
  - MIGRAINE [None]
  - ESCHERICHIA INFECTION [None]
  - HAEMATOCHEZIA [None]
